FAERS Safety Report 4501918-1 (Version None)
Quarter: 2004Q4

REPORT INFORMATION
  Report Type: 
  Country: None (occurrence: None)
  Receive Date: 20041116
  Receipt Date: 20041104
  Transmission Date: 20050328
  Serious: Yes (Hospitalization)
  Sender: FDA-Public Use
  Company Number: FR-BRISTOL-MYERS SQUIBB COMPANY-12755930

PATIENT
  Age: 78 Year
  Sex: Male
  Weight: 67 kg

DRUGS (9)
  1. ELISOR TABS [Suspect]
     Route: 048
     Dates: start: 20040923, end: 20040925
  2. ROCEPHIN [Suspect]
     Dosage: THERAPY FROM 10-SEP-2004 TO 16-SEP-2004 AND FROM 23-SEP-2004 TO 10-OCT-2004.
     Route: 042
     Dates: start: 20040910, end: 20041010
  3. TARGOCID [Suspect]
     Route: 042
     Dates: start: 20040916, end: 20040923
  4. VANCOCIN HCL [Suspect]
     Dosage: THERAPY FROM 10-SEP-2004 TO 16-SEP-2004 AND FROM 23-SEP-2004 TO 01-OCT-2004.
     Route: 042
     Dates: start: 20040910, end: 20041001
  5. BACTRIM [Suspect]
     Route: 048
     Dates: start: 20040913, end: 20040923
  6. PLAVIX [Concomitant]
     Dates: end: 20040923
  7. FONZYLANE [Concomitant]
     Dates: end: 20040925
  8. JOSIR [Concomitant]
     Dates: start: 20040910
  9. SIMVASTATIN [Concomitant]

REACTIONS (3)
  - EPISTAXIS [None]
  - PURPURA [None]
  - THROMBOCYTOPENIA [None]
